FAERS Safety Report 7776873-1 (Version None)
Quarter: 2011Q3

REPORT INFORMATION
  Report Type: 
  Country: None (occurrence: None)
  Receive Date: 20110926
  Receipt Date: 20110914
  Transmission Date: 20111222
  Serious: Yes (Hospitalization, Other)
  Sender: FDA-Public Use
  Company Number: US-CELGENEUS-163-21880-11091849

PATIENT
  Sex: Male

DRUGS (3)
  1. REVLIMID [Suspect]
     Dosage: 10 MILLIGRAM
     Route: 048
     Dates: start: 20110331
  2. DIOVAN HCT [Concomitant]
     Route: 065
  3. CLOMIPRAMINE HCL [Concomitant]
     Route: 065

REACTIONS (1)
  - ACCESSORY SPLEEN [None]
